FAERS Safety Report 25577932 (Version 2)
Quarter: 2025Q3

REPORT INFORMATION
  Report Type: Spontaneous
  Country: CA (occurrence: CA)
  Receive Date: 20250718
  Receipt Date: 20250819
  Transmission Date: 20251021
  Serious: Yes (Other)
  Sender: CURIUM PHARMACEUTICALS
  Company Number: None

PATIENT
  Age: 82 Year
  Sex: Female

DRUGS (1)
  1. TECHNETIUM TC-99M SESTAMIBI [Suspect]
     Active Substance: TECHNETIUM TC-99M SESTAMIBI
     Indication: Scan myocardial perfusion
     Route: 042
     Dates: start: 20250121, end: 20250121

REACTIONS (6)
  - Blood pressure decreased [Unknown]
  - Dizziness [Unknown]
  - Fatigue [Unknown]
  - Malaise [Unknown]
  - Pallor [Unknown]
  - Tremor [Unknown]

NARRATIVE: CASE EVENT DATE: 20250121
